FAERS Safety Report 6707120-7 (Version None)
Quarter: 2010Q2

REPORT INFORMATION
  Report Type: 
  Country: None (occurrence: None)
  Receive Date: 20100503
  Receipt Date: 20100426
  Transmission Date: 20101027
  Serious: Yes (Hospitalization)
  Sender: FDA-Public Use
  Company Number: D0067424A

PATIENT
  Age: 58 Year
  Sex: Female

DRUGS (11)
  1. ATMADISC FORTE [Suspect]
     Indication: CHRONIC OBSTRUCTIVE PULMONARY DISEASE
     Route: 055
     Dates: start: 20100325, end: 20100325
  2. PREDNISOLON [Concomitant]
     Indication: CHRONIC OBSTRUCTIVE PULMONARY DISEASE
     Dosage: 10MG PER DAY
     Route: 048
     Dates: start: 20091201
  3. PANTOPRAZOLE [Concomitant]
     Dosage: 20MG PER DAY
     Route: 048
     Dates: start: 20030101
  4. CALCIMAGON-D3 [Concomitant]
     Indication: OSTEOPOROSIS
     Dosage: 1UNIT TWICE PER DAY
     Route: 048
     Dates: start: 20050101
  5. ASPIRIN [Concomitant]
     Dosage: 100MG PER DAY
     Route: 048
     Dates: start: 20030101
  6. VALORON [Concomitant]
     Dosage: 20DROP THREE TIMES PER DAY
     Route: 048
     Dates: start: 20091201
  7. FORMOTEROL [Concomitant]
     Indication: CHRONIC OBSTRUCTIVE PULMONARY DISEASE
     Dosage: 12MCG TWICE PER DAY
     Route: 055
     Dates: start: 20091201
  8. SPIRIVA [Concomitant]
     Indication: CHRONIC OBSTRUCTIVE PULMONARY DISEASE
     Dosage: 18MCG PER DAY
     Route: 055
     Dates: start: 20091201
  9. AZITHROMYCIN [Concomitant]
     Indication: ATYPICAL MYCOBACTERIAL INFECTION
     Dosage: 250MG PER DAY
     Route: 048
     Dates: start: 20100319
  10. RIFAMPIN [Concomitant]
     Indication: ATYPICAL MYCOBACTERIAL INFECTION
     Dosage: 600MG PER DAY
     Route: 048
     Dates: start: 20100319
  11. ETHAMBUTOL HYDROCHLORIDE [Concomitant]
     Indication: ATYPICAL MYCOBACTERIAL INFECTION
     Dosage: 2G PER DAY
     Route: 048
     Dates: start: 20100319

REACTIONS (6)
  - AGITATION [None]
  - BRONCHOSPASM [None]
  - COLD SWEAT [None]
  - DYSPNOEA [None]
  - ORTHOPNOEA [None]
  - RESPIRATORY ACIDOSIS [None]
